FAERS Safety Report 14123018 (Version 1)
Quarter: 2017Q4

REPORT INFORMATION
  Report Type: Spontaneous
  Country: US (occurrence: US)
  Receive Date: 20171024
  Receipt Date: 20171024
  Transmission Date: 20180321
  Serious: Yes (Other)
  Sender: FDA-Public Use
  Company Number: None

PATIENT
  Age: 27 Year
  Sex: Female

DRUGS (1)
  1. XIIDRA [Suspect]
     Active Substance: LIFITEGRAST
     Indication: DRY EYE
     Dosage: STRENGTH 5% PER GTT DROP(S)
     Route: 047
     Dates: start: 20170929, end: 20171017

REACTIONS (1)
  - Visual impairment [None]

NARRATIVE: CASE EVENT DATE: 20171017
